FAERS Safety Report 7782679-X (Version None)
Quarter: 2011Q3

REPORT INFORMATION
  Report Type: 
  Country: None (occurrence: None)
  Receive Date: 20110928
  Receipt Date: 20110919
  Transmission Date: 20111222
  Serious: Yes (Hospitalization, Other)
  Sender: FDA-Public Use
  Company Number: US-US-EMD SERONO, INC.-232391J09USA

PATIENT
  Sex: Female
  Weight: 112 kg

DRUGS (8)
  1. POTASSIUM [Concomitant]
     Indication: BLOOD POTASSIUM DECREASED
  2. FUROSEMIDE [Concomitant]
     Indication: HYPERTENSION
     Route: 065
  3. FUROSEMIDE [Concomitant]
     Indication: FLUID RETENTION
  4. REBIF [Suspect]
     Indication: MULTIPLE SCLEROSIS
     Route: 058
     Dates: start: 20070813, end: 20110701
  5. AMLODIPINE [Concomitant]
     Indication: HYPERTENSION
     Route: 065
  6. SIMVASTATIN [Concomitant]
     Indication: BLOOD CHOLESTEROL INCREASED
     Route: 065
  7. POTASSIUM [Concomitant]
     Indication: HYPERTENSION
     Route: 065
  8. GABAPENTIN [Concomitant]
     Indication: CONVULSION
     Route: 065

REACTIONS (10)
  - CHEST PAIN [None]
  - ELECTROCARDIOGRAM ABNORMAL [None]
  - CARDIAC STRESS TEST ABNORMAL [None]
  - UTERINE LEIOMYOMA [None]
  - CARDIAC DISORDER [None]
  - CARDIOVASCULAR INSUFFICIENCY [None]
  - ASTHENIA [None]
  - UTERINE NEOPLASM [None]
  - ARRHYTHMIA [None]
  - DYSARTHRIA [None]
